FAERS Safety Report 8933488 (Version 1)
Quarter: 2012Q4

REPORT INFORMATION
  Report Type: 
  Country: US (occurrence: US)
  Receive Date: 20121129
  Receipt Date: 20121129
  Transmission Date: 20130627
  Serious: No
  Sender: FDA-Public Use
  Company Number: US-PFIZER INC-2012298966

PATIENT
  Age: 58 Year

DRUGS (2)
  1. NEURONTIN [Suspect]
     Dosage: 300 mg, 3x/day
  2. ZOLOFT [Suspect]
     Dosage: 200 mg, 1x/day (100mg two daily)

REACTIONS (1)
  - Malaise [Unknown]
